FAERS Safety Report 17093523 (Version 1)
Quarter: 2019Q4

REPORT INFORMATION
  Report Type: Spontaneous
  Country: US (occurrence: US)
  Receive Date: 20191129
  Receipt Date: 20191129
  Transmission Date: 20200122
  Serious: No
  Sender: FDA-Public Use
  Company Number: US-GLENMARK PHARMACEUTICALS-2019GMK041025

PATIENT

DRUGS (1)
  1. PRAMIPEXOLE DIHYDROCHLORIDE. [Suspect]
     Active Substance: PRAMIPEXOLE DIHYDROCHLORIDE
     Indication: RESTLESS LEGS SYNDROME
     Dosage: 1 DF, HS (AT NIGHT)
     Route: 065
     Dates: start: 201809

REACTIONS (2)
  - Drug ineffective [Unknown]
  - Therapeutic response unexpected [Unknown]
